FAERS Safety Report 9467664 (Version 1)
Quarter: 2013Q3

REPORT INFORMATION
  Report Type: Spontaneous
  Country: US (occurrence: None)
  Receive Date: 20130819
  Receipt Date: 20130819
  Transmission Date: 20140515
  Serious: Yes (Other)
  Sender: FDA-Public Use
  Company Number: None

PATIENT
  Age: 59 Year
  Sex: Male
  Weight: 90.72 kg

DRUGS (1)
  1. LISINOPRIL 10MG [Suspect]
     Indication: HYPERTENSION
     Dosage: 1   ONCE DAILY  TAKEN BY MOUTH?07/22/2013 - 08/23/2013
     Route: 048
     Dates: start: 20130722

REACTIONS (1)
  - Cardiac murmur [None]
